FAERS Safety Report 10375354 (Version 1)
Quarter: 2014Q1

REPORT INFORMATION
  Report Type: Spontaneous
  Country: US (occurrence: None)
  Receive Date: 20140306
  Receipt Date: 20140306
  Transmission Date: 20141002
  Serious: Yes (Other)
  Sender: FDA-Public Use
  Company Number: 163-21880-13041495

PATIENT
  Age: 74 Year
  Sex: Male
  Weight: 95.26 kg

DRUGS (16)
  1. REVLIMID (LENALIDOMIDE) (25 MILLIGRAM, CAPSULES) [Suspect]
     Indication: PLASMA CELL MYELOMA
     Route: 048
     Dates: start: 20100925, end: 2010
  2. VELCADE (BORTEZOMIB) [Concomitant]
  3. ASPIRIN (ACETYLSALICYLIC ACID) [Concomitant]
  4. CALCTRATE (CALCIUM CARBONATE) [Concomitant]
  5. ATENOLOL [Concomitant]
  6. SIMVASTATIN [Concomitant]
  7. KLOR-CON (POTASSIUM CHLORIDE) [Concomitant]
  8. PRAMIPEXOLE [Concomitant]
  9. OXYCODONE-ACETAMINOPHEN (OXYCOCET) [Concomitant]
  10. ADVIL (IBUPROFEN) [Concomitant]
  11. VITAMIN D (ERGOCALCIFEROL) [Concomitant]
  12. LUPRON (LEUPROLIN ACETATE) [Concomitant]
  13. ALLOPURINOL [Concomitant]
  14. FURMOSEMIDE [Concomitant]
  15. TERAZOSIN [Concomitant]
  16. VITAMIN B-COMPLEX [Concomitant]

REACTIONS (1)
  - Renal failure [None]
